FAERS Safety Report 23043759 (Version 1)
Quarter: 2023Q4

REPORT INFORMATION
  Report Type: Report from Study
  Country: US (occurrence: US)
  Receive Date: 20231009
  Receipt Date: 20231009
  Transmission Date: 20240109
  Serious: Yes (Other)
  Sender: FDA-Public Use
  Company Number: US-INSMED, INC.-2023-00319-US

PATIENT
  Sex: Female

DRUGS (1)
  1. ARIKAYCE [Suspect]
     Active Substance: AMIKACIN
     Indication: Mycobacterium avium complex infection
     Dosage: 590 MILLIGRAM, UNK
     Route: 055
     Dates: start: 20230126, end: 20230926

REACTIONS (9)
  - Hearing aid user [Not Recovered/Not Resolved]
  - Blood glucose abnormal [Not Recovered/Not Resolved]
  - Dysgeusia [Recovered/Resolved]
  - Productive cough [Not Recovered/Not Resolved]
  - Cough [Recovered/Resolved]
  - Nausea [Recovered/Resolved]
  - Tinnitus [Not Recovered/Not Resolved]
  - Haemoptysis [Recovered/Resolved]
  - Intentional dose omission [Unknown]

NARRATIVE: CASE EVENT DATE: 20230101
